FAERS Safety Report 14832955 (Version 1)
Quarter: 2018Q2

REPORT INFORMATION
  Report Type: Spontaneous
  Country: US (occurrence: US)
  Receive Date: 20180501
  Receipt Date: 20180501
  Transmission Date: 20180711
  Serious: Yes (Other)
  Sender: FDA-Public Use
  Company Number: US-SAOL THERAPEUTICS-2018SAO00635

PATIENT
  Age: 32 Year
  Sex: Male

DRUGS (1)
  1. LIORESAL [Suspect]
     Active Substance: BACLOFEN
     Dosage: 872 ?G, \DAY
     Route: 037

REACTIONS (3)
  - Implant site infection [Not Recovered/Not Resolved]
  - Implant site necrosis [Not Recovered/Not Resolved]
  - Implant site erosion [Not Recovered/Not Resolved]

NARRATIVE: CASE EVENT DATE: 20180423
